FAERS Safety Report 21558955 (Version 1)
Quarter: 2022Q4

REPORT INFORMATION
  Report Type: Spontaneous
  Country: US (occurrence: None)
  Receive Date: 20221104
  Receipt Date: 20221104
  Transmission Date: 20230113
  Serious: No
  Sender: FDA-Public Use
  Company Number: None

PATIENT
  Age: 68 Year
  Sex: Female
  Weight: 68.04 kg

DRUGS (34)
  1. CAPECITABINE [Suspect]
     Active Substance: CAPECITABINE
     Indication: Breast cancer female
     Dosage: FREQUENCY : TWICE A DAY;?
     Route: 048
  2. ALBUTEROL [Concomitant]
     Active Substance: ALBUTEROL
  3. AMLODIPINE [Concomitant]
     Active Substance: AMLODIPINE BESYLATE
  4. APREPITANT [Concomitant]
     Active Substance: APREPITANT
  5. ASPIRIN [Concomitant]
     Active Substance: ASPIRIN
  6. ATORVASTATIN [Concomitant]
     Active Substance: ATORVASTATIN
  7. CALTRATE [Concomitant]
     Active Substance: CALCIUM CARBONATE
  8. CELEBREX [Concomitant]
     Active Substance: CELECOXIB
  9. CLOBETASOL [Concomitant]
     Active Substance: CLOBETASOL
  10. DICLOFENAC [Concomitant]
     Active Substance: DICLOFENAC
  11. DULCOLAX NOS [Concomitant]
     Active Substance: BISACODYL OR DOCUSATE SODIUM
  12. EMERGEN-C [Concomitant]
     Active Substance: VITAMINS
  13. EPIPEN [Concomitant]
     Active Substance: EPINEPHRINE
  14. FAMOTIDINE [Concomitant]
     Active Substance: FAMOTIDINE
  15. FLUTICASONE [Concomitant]
     Active Substance: FLUTICASONE
  16. HYDROCHLOROTHIAZIDE [Concomitant]
     Active Substance: HYDROCHLOROTHIAZIDE
  17. KLOR-CON [Concomitant]
     Active Substance: POTASSIUM CHLORIDE
  18. LOSARTAN [Concomitant]
     Active Substance: LOSARTAN
  19. METFORMIN [Concomitant]
     Active Substance: METFORMIN HYDROCHLORIDE
  20. MUPIROCIN [Concomitant]
     Active Substance: MUPIROCIN
  21. NAPROXEN [Concomitant]
     Active Substance: NAPROXEN
  22. NIFEDIPINE [Concomitant]
     Active Substance: NIFEDIPINE
  23. OMEPRAZOLE [Concomitant]
     Active Substance: OMEPRAZOLE
  24. ONDANSETRON [Concomitant]
     Active Substance: ONDANSETRON
  25. OXYCODONE [Concomitant]
     Active Substance: OXYCODONE
  26. PAROXETINE [Concomitant]
     Active Substance: PAROXETINE
  27. PROAIR HFA [Concomitant]
     Active Substance: ALBUTEROL SULFATE
  28. PROCHLORPERAZINE [Concomitant]
     Active Substance: PROCHLORPERAZINE
  29. SALONPAS PAIN RELIEF [Concomitant]
     Active Substance: MENTHOL\METHYL SALICYLATE
  30. SYMBICORT [Concomitant]
     Active Substance: BUDESONIDE\FORMOTEROL FUMARATE DIHYDRATE
  31. TESSALON [Concomitant]
     Active Substance: BENZONATATE
  32. TOUJEO [Concomitant]
     Active Substance: INSULIN GLARGINE
  33. VENLAFAXINE [Concomitant]
     Active Substance: VENLAFAXINE HYDROCHLORIDE
  34. ZOMETA [Concomitant]
     Active Substance: ZOLEDRONIC ACID

REACTIONS (1)
  - SARS-CoV-2 test positive [None]
